FAERS Safety Report 7139001-1 (Version None)
Quarter: 2010Q4

REPORT INFORMATION
  Report Type: 
  Country: None (occurrence: None)
  Receive Date: 20101206
  Receipt Date: 20101129
  Transmission Date: 20110411
  Serious: Yes (Hospitalization)
  Sender: FDA-Public Use
  Company Number: A0893151A

PATIENT
  Sex: Female

DRUGS (1)
  1. ADVAIR [Suspect]
     Route: 055
     Dates: start: 20061024

REACTIONS (1)
  - INFECTION [None]
